FAERS Safety Report 7420951-3 (Version None)
Quarter: 2011Q2

REPORT INFORMATION
  Report Type: 
  Country: None (occurrence: None)
  Receive Date: 20110418
  Receipt Date: 20110411
  Transmission Date: 20111010
  Serious: Yes (Other)
  Sender: FDA-Public Use
  Company Number: B0713555A

PATIENT
  Age: 61 Year
  Sex: Female

DRUGS (2)
  1. AVANDIA [Suspect]
     Dosage: 4MG PER DAY
     Route: 065
  2. INSULIN [Concomitant]

REACTIONS (5)
  - FLUID RETENTION [None]
  - MACULAR OEDEMA [None]
  - OEDEMA PERIPHERAL [None]
  - BLINDNESS [None]
  - WEIGHT INCREASED [None]
